FAERS Safety Report 12477773 (Version 1)
Quarter: 2016Q2

REPORT INFORMATION
  Report Type: Spontaneous
  Country: US (occurrence: US)
  Receive Date: 20160617
  Receipt Date: 20160617
  Transmission Date: 20160815
  Serious: Yes (Other)
  Sender: FDA-Public Use
  Company Number: US-BRISTOL-MYERS SQUIBB COMPANY-BMS-2016-045906

PATIENT
  Sex: Female

DRUGS (2)
  1. AVASTIN                            /00848101/ [Suspect]
     Active Substance: SIMVASTATIN
     Indication: GLIOBLASTOMA MULTIFORME
     Dosage: UNK, Q2WK
     Route: 065
     Dates: start: 201602
  2. OPDIVO [Suspect]
     Active Substance: NIVOLUMAB
     Indication: GLIOBLASTOMA MULTIFORME
     Dosage: UNK UNK, Q2WK
     Route: 042
     Dates: start: 201602

REACTIONS (3)
  - Hemiparesis [Unknown]
  - Product use issue [Unknown]
  - Asthenia [Unknown]
